FAERS Safety Report 6897943-6 (Version None)
Quarter: 2010Q3

REPORT INFORMATION
  Report Type: 
  Country: None (occurrence: None)
  Receive Date: 20100802
  Receipt Date: 20070813
  Transmission Date: 20110219
  Serious: No
  Sender: FDA-Public Use
  Company Number: US-PFIZER INC-2007067968

PATIENT
  Sex: Female
  Weight: 81.6 kg

DRUGS (6)
  1. LYRICA [Suspect]
     Indication: FIBROMYALGIA
     Dates: start: 20070801, end: 20070801
  2. SINEMET [Concomitant]
     Indication: PARKINSON'S DISEASE
  3. REQUIP [Concomitant]
     Indication: PARKINSON'S DISEASE
  4. PREMARIN [Concomitant]
  5. TOPROL-XL [Concomitant]
  6. THYROID TAB [Concomitant]
     Indication: THYROID DISORDER

REACTIONS (5)
  - BALANCE DISORDER [None]
  - FATIGUE [None]
  - FEELING ABNORMAL [None]
  - HEAD DISCOMFORT [None]
  - SOMNOLENCE [None]
